FAERS Safety Report 4750059-7 (Version None)
Quarter: 2005Q3

REPORT INFORMATION
  Report Type: 
  Country: None (occurrence: None)
  Receive Date: 20050822
  Receipt Date: 20050808
  Transmission Date: 20060218
  Serious: Yes (Hospitalization)
  Sender: FDA-Public Use
  Company Number: 2005-02899

PATIENT
  Age: 69 Year
  Sex: Female

DRUGS (1)
  1. KENTERA (WATSON LABORATORIES)(OXYBUTYNIN) TRANSDERMAL PATCH, 3.9MG [Suspect]
     Indication: URGE INCONTINENCE
     Dosage: 1 PATCH, 2/WEEK, TRANSDERMAL
     Route: 062
     Dates: start: 20050530, end: 20050723

REACTIONS (2)
  - PAIN [None]
  - URTICARIA [None]
